FAERS Safety Report 9796333 (Version 1)
Quarter: 2014Q1

REPORT INFORMATION
  Report Type: Spontaneous
  Country: US (occurrence: US)
  Receive Date: 20140103
  Receipt Date: 20140103
  Transmission Date: 20141002
  Serious: No
  Sender: FDA-Public Use
  Company Number: US-GILEAD-2013-0085095

PATIENT
  Sex: Female

DRUGS (1)
  1. VIREAD [Suspect]
     Dosage: UNK
     Route: 065
     Dates: start: 20110805, end: 20130517

REACTIONS (1)
  - Proteinuria [Unknown]
